FAERS Safety Report 8837958 (Version 1)
Quarter: 2012Q4

REPORT INFORMATION
  Report Type: 
  Country: US (occurrence: US)
  Receive Date: 20121012
  Receipt Date: 20121012
  Transmission Date: 20130627
  Serious: Yes (Other)
  Sender: FDA-Public Use
  Company Number: US-ROCHE-1132378

PATIENT
  Sex: Male

DRUGS (25)
  1. RITUXAN [Suspect]
     Indication: IDIOPATHIC THROMBOCYTOPENIC PURPURA
     Route: 042
  2. RITUXAN [Suspect]
     Indication: OFF LABEL USE
     Route: 065
     Dates: start: 20000601
  3. RITUXAN [Suspect]
     Route: 065
     Dates: start: 20000608
  4. RITUXAN [Suspect]
     Route: 065
     Dates: start: 20000615
  5. RITUXAN [Suspect]
     Route: 065
     Dates: start: 20000706
  6. ANZEMET [Concomitant]
     Route: 042
  7. ANZEMET [Concomitant]
     Route: 065
     Dates: start: 20000601
  8. ANZEMET [Concomitant]
     Route: 065
     Dates: start: 20000608
  9. ANZEMET [Concomitant]
     Route: 065
     Dates: start: 20000615
  10. ANZEMET [Concomitant]
     Route: 065
     Dates: start: 20000706
  11. DECADRON [Concomitant]
     Route: 042
  12. DECADRON [Concomitant]
     Route: 065
     Dates: start: 20000601
  13. DECADRON [Concomitant]
     Route: 065
     Dates: start: 20000608
  14. DECADRON [Concomitant]
     Route: 065
     Dates: start: 20000615
  15. DECADRON [Concomitant]
     Route: 065
     Dates: start: 20000706
  16. BENADRYL [Concomitant]
     Route: 042
  17. BENADRYL [Concomitant]
     Route: 065
     Dates: start: 20000601
  18. BENADRYL [Concomitant]
     Route: 065
     Dates: start: 20000608
  19. BENADRYL [Concomitant]
     Route: 065
     Dates: start: 20000615
  20. BENADRYL [Concomitant]
     Route: 065
     Dates: start: 20000706
  21. TAGAMET [Concomitant]
     Route: 042
  22. TAGAMET [Concomitant]
     Route: 065
     Dates: start: 20000601
  23. TAGAMET [Concomitant]
     Route: 065
     Dates: start: 20000608
  24. TAGAMET [Concomitant]
     Route: 065
     Dates: start: 20000615
  25. TAGAMET [Concomitant]
     Route: 065
     Dates: start: 20000706

REACTIONS (4)
  - Platelet count decreased [Unknown]
  - Pain [Unknown]
  - Fatigue [Unknown]
  - Contusion [Unknown]
